FAERS Safety Report 6651428-0 (Version None)
Quarter: 2010Q1

REPORT INFORMATION
  Report Type: 
  Country: None (occurrence: None)
  Receive Date: 20100325
  Receipt Date: 20100312
  Transmission Date: 20100710
  Serious: Yes (Hospitalization, Other)
  Sender: FDA-Public Use
  Company Number: FR-ELI_LILLY_AND_COMPANY-FR201003003687

PATIENT
  Age: 38 Year
  Sex: Female

DRUGS (3)
  1. CYMBALTA [Suspect]
     Indication: DEPRESSION
     Dosage: 60 MG, DAILY (1/D)
     Route: 048
     Dates: start: 20091101
  2. NORDAZ [Concomitant]
     Dosage: UNK, UNKNOWN
  3. NOCTAMIDE [Concomitant]
     Dosage: UNK, UNKNOWN

REACTIONS (3)
  - CERVICAL CONISATION [None]
  - GALACTORRHOEA [None]
  - INTRADUCTAL PAPILLOMA OF BREAST [None]
